FAERS Safety Report 4776998-9 (Version None)
Quarter: 2005Q3

REPORT INFORMATION
  Report Type: 
  Country: None (occurrence: None)
  Receive Date: 20050923
  Receipt Date: 20050922
  Transmission Date: 20060218
  Serious: Yes (Disabling)
  Sender: FDA-Public Use
  Company Number: US-GLAXOSMITHKLINE-A0575443A

PATIENT
  Age: 30 Year
  Sex: Female

DRUGS (2)
  1. WELLBUTRIN [Suspect]
     Indication: ANXIETY
     Dosage: 450MG PER DAY
     Route: 048
     Dates: start: 20050830
  2. NO CONCURRENT MEDICATION [Concomitant]

REACTIONS (2)
  - DRUG LEVEL INCREASED [None]
  - DRUG SCREEN POSITIVE [None]
